APPROVED DRUG PRODUCT: CALCIUM ACETATE
Active Ingredient: CALCIUM ACETATE
Strength: 667MG
Dosage Form/Route: CAPSULE;ORAL
Application: A077728 | Product #001 | TE Code: AB
Applicant: HIKMA PHARMACEUTICALS USA INC
Approved: Feb 26, 2008 | RLD: No | RS: No | Type: RX